FAERS Safety Report 7460529-9 (Version None)
Quarter: 2011Q2

REPORT INFORMATION
  Report Type: 
  Country: None (occurrence: None)
  Receive Date: 20110505
  Receipt Date: 20110504
  Transmission Date: 20111010
  Serious: Yes (Life-Threatening)
  Sender: FDA-Public Use
  Company Number: PHHY2011GB30629

PATIENT
  Age: 43 Year
  Sex: Female

DRUGS (2)
  1. FLUOROURACIL [Suspect]
     Indication: BREAST CANCER
     Dosage: UNK
     Dates: start: 20110316
  2. ZAPONEX [Interacting]
     Dosage: UNK
     Route: 048
     Dates: start: 20060919

REACTIONS (5)
  - NEOPLASM MALIGNANT [None]
  - DRUG INTERACTION [None]
  - NEUTROPHIL COUNT DECREASED [None]
  - AGRANULOCYTOSIS [None]
  - LEUKOPENIA [None]
